FAERS Safety Report 17336537 (Version 1)
Quarter: 2020Q1

REPORT INFORMATION
  Report Type: Report from Study
  Country: JP (occurrence: JP)
  Receive Date: 20200128
  Receipt Date: 20200128
  Transmission Date: 20200409
  Serious: Yes (Death)
  Sender: FDA-Public Use
  Company Number: JP-JT-EVA201800813KERYXP-001

PATIENT
  Age: 64 Year
  Sex: Female
  Weight: 41 kg

DRUGS (30)
  1. RIONA [Suspect]
     Active Substance: FERRIC CITRATE ANHYDROUS
     Dosage: 500 MILLIGRAM, QD
     Route: 048
     Dates: start: 20161025, end: 20170821
  2. LOXOPROFEN                         /00890702/ [Concomitant]
     Active Substance: LOXOPROFEN
     Indication: PROPHYLAXIS
     Dosage: 180 MILLIGRAM, QD
     Route: 048
     Dates: start: 20170321, end: 20170326
  3. EPOETIN BETA [Concomitant]
     Active Substance: ERYTHROPOIETIN
     Indication: NEPHROGENIC ANAEMIA
     Dosage: 1500 INTERNATIONAL UNIT, 39 DOSES IN 3 MONTHS
     Route: 042
  4. FESIN                              /00023550/ [Concomitant]
     Active Substance: IRON SUCROSE
     Indication: MINERAL SUPPLEMENTATION
     Dosage: 40 MILLIGRAM, 2 DOSES IN 3 MONTHS
     Route: 042
  5. CALTAN [Concomitant]
     Active Substance: CALCIUM CARBONATE
     Indication: HYPERPHOSPHATAEMIA
     Dosage: 4500 MILLIGRAM, QD
     Route: 048
     Dates: start: 20150623
  6. DOPS [Concomitant]
     Active Substance: DROXIDOPA
     Indication: PROPHYLAXIS
     Dosage: 200 MILLIGRAM, QD
     Route: 048
     Dates: start: 20160922, end: 20161011
  7. KAYEXALATE [Concomitant]
     Active Substance: SODIUM POLYSTYRENE SULFONATE
     Indication: PROPHYLAXIS
     Dosage: 9.81 GRAM, QD
     Route: 048
     Dates: start: 20170418
  8. LOXONIN [Concomitant]
     Active Substance: LOXOPROFEN SODIUM
     Dosage: 100 MILLIGRAM, QD
     Route: 062
     Dates: start: 20090331
  9. BAYASPIRIN [Concomitant]
     Active Substance: ASPIRIN
     Dosage: 100 MILLIGRAM, QD
     Route: 048
     Dates: start: 20130822
  10. VIVIANT [Concomitant]
     Active Substance: BAZEDOXIFENE
     Dosage: 20 MILLIGRAM, QD
     Route: 048
     Dates: start: 20150609
  11. FOSRENOL [Concomitant]
     Active Substance: LANTHANUM CARBONATE
     Indication: HYPERPHOSPHATAEMIA
     Dosage: 1000 MILLIGRAM, QD
     Route: 048
     Dates: start: 20160202
  12. EPOETIN BETA [Concomitant]
     Active Substance: ERYTHROPOIETIN
     Dosage: 3000 INTERNATIONAL UNIT, 28 DOSES IN 6 MONTHS
     Route: 042
  13. FESIN                              /00023550/ [Concomitant]
     Active Substance: IRON SUCROSE
     Dosage: 40 MILLIGRAM, 6 DOSES IN 12 MONTHS
     Route: 042
  14. EPOETIN BETA [Concomitant]
     Active Substance: ERYTHROPOIETIN
     Dosage: 3000 INTERNATIONAL UNIT, 83 DOSES IN 12 MONTHS
     Route: 042
  15. RIONA [Suspect]
     Active Substance: FERRIC CITRATE ANHYDROUS
     Dosage: 1000 MILLIGRAM, QD
     Route: 048
     Dates: start: 20171114, end: 20180122
  16. RIONA [Suspect]
     Active Substance: FERRIC CITRATE ANHYDROUS
     Dosage: 1500 MILLIGRAM, QD
     Route: 048
     Dates: start: 20180123, end: 20180127
  17. CALCITRIOL. [Concomitant]
     Active Substance: CALCITRIOL
     Indication: HYPERPARATHYROIDISM SECONDARY
     Dosage: 0.25 MICROGRAM, QD
     Route: 048
     Dates: start: 20060829, end: 20170123
  18. CARDENALIN [Concomitant]
     Active Substance: DOXAZOSIN MESYLATE
     Dosage: 0.5 MILLIGRAM, QD
     Route: 048
     Dates: start: 20160319
  19. EPOETIN BETA [Concomitant]
     Active Substance: ERYTHROPOIETIN
     Dosage: 1500 INTERNATIONAL UNIT, 39 DOSES IN 3 MONTHS
     Route: 042
  20. EPOETIN BETA [Concomitant]
     Active Substance: ERYTHROPOIETIN
     Dosage: 1500 INTERNATIONAL UNIT, 51 DOSES IN 6 MONTHS
     Route: 042
  21. EPOETIN BETA [Concomitant]
     Active Substance: ERYTHROPOIETIN
     Dosage: 1500 INTERNATIONAL UNIT, 42 DOSES IN 12 MONTHS
     Route: 042
  22. FESIN                              /00023550/ [Concomitant]
     Active Substance: IRON SUCROSE
     Dosage: 40 MILLIGRAM, 4 DOSES IN 6 MONTHS
     Route: 042
  23. RIONA [Suspect]
     Active Substance: FERRIC CITRATE ANHYDROUS
     Dosage: 750 MILLIGRAM, QD
     Route: 048
     Dates: start: 20170822, end: 20171113
  24. CALBLOCK [Concomitant]
     Active Substance: AZELNIDIPINE
     Dosage: UNK
     Route: 048
     Dates: start: 20121113
  25. L CARTIN [Concomitant]
     Active Substance: LEVOCARNITINE HYDROCHLORIDE
     Dosage: 1000 MILLIGRAM, QD
     Route: 042
     Dates: start: 20141118, end: 20160616
  26. RIONA [Suspect]
     Active Substance: FERRIC CITRATE ANHYDROUS
     Indication: HYPERPHOSPHATAEMIA
     Dosage: 250 MILLIGRAM, QD
     Route: 048
     Dates: start: 20160412, end: 20161024
  27. CALCITRIOL. [Concomitant]
     Active Substance: CALCITRIOL
     Dosage: 0.375 MICROGRAM, QD
     Route: 048
     Dates: start: 20170124
  28. CINACALCET HYDROCHLORIDE. [Concomitant]
     Active Substance: CINACALCET HYDROCHLORIDE
     Indication: HYPERPARATHYROIDISM SECONDARY
     Dosage: 75 MILLIGRAM, QD
     Route: 048
     Dates: start: 20090714
  29. PARIET [Concomitant]
     Active Substance: RABEPRAZOLE SODIUM
     Indication: HYPERCHLORHYDRIA
     Dosage: 10 MILLIGRAM, QD
     Route: 048
     Dates: start: 20091031
  30. MICARDIS [Concomitant]
     Active Substance: TELMISARTAN
     Dosage: 80 MILLIGRAM, QD
     Route: 048
     Dates: start: 20130108

REACTIONS (24)
  - Pharyngitis [Recovered/Resolved]
  - Pharyngitis [Recovered/Resolved]
  - Bronchitis [Recovered/Resolved]
  - Bronchitis [Recovered/Resolved]
  - Bronchitis [Recovered/Resolved]
  - Musculoskeletal stiffness [Not Recovered/Not Resolved]
  - Eczema asteatotic [Recovered/Resolved]
  - Shunt stenosis [Recovering/Resolving]
  - Muscle spasms [Recovered/Resolved]
  - Subarachnoid haemorrhage [Fatal]
  - Pharyngitis [Recovered/Resolved]
  - Pharyngitis [Recovered/Resolved]
  - Upper respiratory tract inflammation [Recovered/Resolved]
  - Shunt stenosis [Recovering/Resolving]
  - Back pain [Not Recovered/Not Resolved]
  - Asteatosis [Not Recovered/Not Resolved]
  - Pharyngitis [Recovered/Resolved]
  - Upper respiratory tract inflammation [Recovered/Resolved]
  - Stomatitis [Recovered/Resolved]
  - Dental caries [Recovered/Resolved]
  - Nasopharyngitis [Recovered/Resolved]
  - Pain in extremity [Not Recovered/Not Resolved]
  - Bronchitis [Recovered/Resolved]
  - Nasopharyngitis [Recovered/Resolved]

NARRATIVE: CASE EVENT DATE: 201608
